FAERS Safety Report 10457294 (Version 2)
Quarter: 2014Q3

REPORT INFORMATION
  Report Type: Spontaneous
  Country: IT (occurrence: IT)
  Receive Date: 20140916
  Receipt Date: 20140916
  Transmission Date: 20150326
  Serious: Yes (Other)
  Sender: FDA-Public Use
  Company Number: PHHY2014IT115768

PATIENT
  Age: 50 Year
  Sex: Male

DRUGS (1)
  1. KETOPROFEN. [Suspect]
     Active Substance: KETOPROFEN
     Indication: ARTHRALGIA
     Dosage: 1 DF, ONCE/SINGLE
     Dates: start: 20140817, end: 20140817

REACTIONS (1)
  - Photodermatosis [Recovering/Resolving]

NARRATIVE: CASE EVENT DATE: 20140818
